FAERS Safety Report 12912217 (Version 7)
Quarter: 2017Q2

REPORT INFORMATION
  Report Type: Report from Study
  Country: US (occurrence: US)
  Receive Date: 20161104
  Receipt Date: 20170402
  Transmission Date: 20170830
  Serious: Yes (Other)
  Sender: FDA-Public Use
  Company Number: US-TEVA-709560USA

PATIENT
  Age: 59 Year
  Sex: Female

DRUGS (2)
  1. LITHIUM. [Concomitant]
     Active Substance: LITHIUM
  2. CLOZAPINE. [Suspect]
     Active Substance: CLOZAPINE
     Route: 048

REACTIONS (3)
  - Neutropenia [Recovered/Resolved]
  - Agranulocytosis [Not Recovered/Not Resolved]
  - Granulocytopenia [Not Recovered/Not Resolved]

NARRATIVE: CASE EVENT DATE: 20161022
